FAERS Safety Report 5806085-X (Version None)
Quarter: 2008Q3

REPORT INFORMATION
  Report Type: 
  Country: None (occurrence: None)
  Receive Date: 20080709
  Receipt Date: 20080709
  Transmission Date: 20090109
  Serious: Yes (Life-Threatening, Hospitalization)
  Sender: FDA-Public Use
  Company Number: None

PATIENT
  Age: 76 Year
  Sex: Male
  Weight: 67 kg

DRUGS (2)
  1. ATENOLOL [Suspect]
     Indication: HYPERTENSION
     Dosage: 25 MG EVERY DAY PO
     Route: 048
     Dates: start: 20070803
  2. DILTIAZEM HCL [Suspect]
     Indication: HYPERTENSION
     Dosage: 420 MG EVERY DAY PO
     Route: 048
     Dates: start: 20040326

REACTIONS (6)
  - BRADYCARDIA [None]
  - CONTUSION [None]
  - DRUG DOSE OMISSION [None]
  - EXCORIATION [None]
  - EYE INJURY [None]
  - FATIGUE [None]
